FAERS Safety Report 9164552 (Version 1)
Quarter: 2013Q1

REPORT INFORMATION
  Report Type: Spontaneous
  Country: AR (occurrence: AR)
  Receive Date: 20130315
  Receipt Date: 20130315
  Transmission Date: 20140127
  Serious: Yes (Hospitalization)
  Sender: FDA-Public Use
  Company Number: PHHY2013AR025159

PATIENT
  Sex: Female

DRUGS (8)
  1. EXFORGE [Suspect]
     Indication: HYPERTENSION
     Dosage: 1 DF, DAILY
     Route: 048
     Dates: start: 200805
  2. EXFORGE [Suspect]
     Dosage: 1 DF, DAILY
     Route: 048
     Dates: start: 200805
  3. LANICOR [Concomitant]
     Dosage: UNK UKN, UNK
     Dates: start: 201302
  4. SINTROM [Concomitant]
     Dosage: UNK UKN, UNK
     Dates: start: 201302
  5. CLOPIDOGREL [Concomitant]
     Dosage: UNK UKN, UNK
     Dates: start: 201302
  6. TAURAL [Concomitant]
     Dosage: UNK UKN, UNK
     Dates: start: 201302
  7. CARVEDILOL [Concomitant]
     Dosage: UNK UKN, UNK
     Dates: start: 201302
  8. ASPIRINETAS [Concomitant]
     Dosage: UNK UKN, UNK
     Dates: start: 201302

REACTIONS (4)
  - Cardiac arrest [Recovering/Resolving]
  - Arrhythmia [Recovering/Resolving]
  - Toxicity to various agents [Not Recovered/Not Resolved]
  - Nausea [Not Recovered/Not Resolved]
